FAERS Safety Report 14055845 (Version 1)
Quarter: 2017Q4

REPORT INFORMATION
  Report Type: Spontaneous
  Country: US (occurrence: US)
  Receive Date: 20171006
  Receipt Date: 20171006
  Transmission Date: 20180321
  Serious: No
  Sender: FDA-Public Use
  Company Number: US-ASTRAZENECA-2017SF00329

PATIENT
  Age: 14018 Day
  Sex: Female
  Weight: 145.2 kg

DRUGS (12)
  1. TRAMADOL. [Concomitant]
     Active Substance: TRAMADOL
     Indication: SPINAL OSTEOARTHRITIS
     Dosage: 50.0MG AS REQUIRED
     Route: 048
  2. HUMALOG [Concomitant]
     Active Substance: INSULIN LISPRO
     Indication: TYPE 2 DIABETES MELLITUS
     Dosage: 22 UNITS, UNKNOWN
     Route: 058
     Dates: start: 2011
  3. PRAZOSIN. [Concomitant]
     Active Substance: PRAZOSIN
     Indication: CARDIAC DISORDER
     Route: 048
     Dates: start: 201708
  4. PRAZOSIN. [Concomitant]
     Active Substance: PRAZOSIN
     Indication: POST-TRAUMATIC STRESS DISORDER
     Dosage: 1.0MG AS REQUIRED
     Route: 048
  5. DIAZEPAM. [Concomitant]
     Active Substance: DIAZEPAM
     Indication: ANXIETY
     Route: 048
     Dates: start: 201708
  6. PRAZOSIN. [Concomitant]
     Active Substance: PRAZOSIN
     Indication: SLEEP DISORDER
     Dosage: 1.0MG AS REQUIRED
     Route: 048
  7. BYDUREON [Suspect]
     Active Substance: EXENATIDE
     Indication: TYPE 2 DIABETES MELLITUS
     Route: 058
     Dates: start: 20170929
  8. PRAZOSIN. [Concomitant]
     Active Substance: PRAZOSIN
     Indication: CARDIAC DISORDER
     Dosage: 1.0MG AS REQUIRED
     Route: 048
  9. TRAMADOL. [Concomitant]
     Active Substance: TRAMADOL
     Indication: SPINAL OSTEOARTHRITIS
     Route: 048
  10. PRAZOSIN. [Concomitant]
     Active Substance: PRAZOSIN
     Indication: POST-TRAUMATIC STRESS DISORDER
     Route: 048
     Dates: start: 201708
  11. PRAZOSIN. [Concomitant]
     Active Substance: PRAZOSIN
     Indication: SLEEP DISORDER
     Route: 048
     Dates: start: 201708
  12. LEVEMIR [Concomitant]
     Active Substance: INSULIN DETEMIR
     Indication: TYPE 2 DIABETES MELLITUS
     Route: 058
     Dates: start: 2011

REACTIONS (7)
  - Feeling abnormal [Not Recovered/Not Resolved]
  - Eye swelling [Recovering/Resolving]
  - Drug hypersensitivity [Unknown]
  - Dizziness [Recovered/Resolved]
  - Dysphonia [Not Recovered/Not Resolved]
  - Blood glucose increased [Unknown]
  - Nausea [Recovered/Resolved]

NARRATIVE: CASE EVENT DATE: 20170929
